FAERS Safety Report 8504871-9 (Version None)
Quarter: 2012Q2

REPORT INFORMATION
  Report Type: 
  Country: None (occurrence: None)
  Receive Date: 20120405
  Receipt Date: 20100809
  Transmission Date: 20120825
  Serious: Yes (Other)
  Sender: FDA-Public Use
  Company Number: PHHY2010US52175

PATIENT
  Sex: Female

DRUGS (3)
  1. ATENOLOL [Concomitant]
  2. BONIVA [Concomitant]
  3. RECLAST [Suspect]
     Dosage: INFUSION

REACTIONS (12)
  - HEADACHE [None]
  - WALKING AID USER [None]
  - PAIN [None]
  - HYPOKINESIA [None]
  - DYSPNOEA [None]
  - ARTHRALGIA [None]
  - DYSSTASIA [None]
  - GAIT DISTURBANCE [None]
  - MUSCULOSKELETAL CHEST PAIN [None]
  - NECK PAIN [None]
  - VOMITING [None]
  - MUSCULOSKELETAL STIFFNESS [None]
